FAERS Safety Report 11590166 (Version 1)
Quarter: 2015Q4

REPORT INFORMATION
  Report Type: Spontaneous
  Country: DE (occurrence: DE)
  Receive Date: 20151002
  Receipt Date: 20151002
  Transmission Date: 20160304
  Serious: Yes (Hospitalization)
  Sender: FDA-Public Use
  Company Number: DE-BAYER-2015-432205

PATIENT
  Age: 38 Year
  Sex: Male
  Weight: 84 kg

DRUGS (1)
  1. GADOVIST [Suspect]
     Active Substance: GADOBUTROL
     Indication: COMPUTERISED TOMOGRAM HEAD
     Dosage: 11 ML, ONCE
     Route: 042
     Dates: start: 20150902, end: 20150902

REACTIONS (6)
  - Abdominal pain upper [None]
  - Back pain [None]
  - Diarrhoea [None]
  - Inflammatory marker increased [None]
  - Erythema [None]
  - Weight decreased [None]

NARRATIVE: CASE EVENT DATE: 20150902
